FAERS Safety Report 15496399 (Version 1)
Quarter: 2018Q4

REPORT INFORMATION
  Report Type: Spontaneous
  Country: TR (occurrence: TR)
  Receive Date: 20181012
  Receipt Date: 20181012
  Transmission Date: 20190205
  Serious: Yes (Life-Threatening)
  Sender: FDA-Public Use
  Company Number: TR-SPECTRUM PHARMACEUTICALS, INC.-18-F-TR-00353

PATIENT
  Age: 27 Year
  Sex: Male
  Weight: 60 kg

DRUGS (1)
  1. FOLOTYN [Suspect]
     Active Substance: PRALATREXATE
     Indication: MYCOSIS FUNGOIDES
     Dosage: 28 MG, QW
     Route: 042
     Dates: start: 20180606, end: 20180726

REACTIONS (2)
  - Off label use [Unknown]
  - JC virus infection [Not Recovered/Not Resolved]

NARRATIVE: CASE EVENT DATE: 20180719
